FAERS Safety Report 5735435-8 (Version None)
Quarter: 2008Q2

REPORT INFORMATION
  Report Type: 
  Country: None (occurrence: None)
  Receive Date: 20080512
  Receipt Date: 20080507
  Transmission Date: 20081010
  Serious: Yes (Hospitalization)
  Sender: FDA-Public Use
  Company Number: GB-ROCHE-563103

PATIENT
  Sex: Female
  Weight: 85 kg

DRUGS (7)
  1. ORLISTAT [Suspect]
     Indication: OBESITY
     Route: 048
     Dates: start: 20071011
  2. BENDROFLUMETHIAZIDE [Concomitant]
     Indication: HYPERTENSION
     Route: 048
  3. METFORMIN HCL [Concomitant]
     Route: 048
  4. ATENOLOL [Concomitant]
     Indication: HYPERTENSION
     Route: 048
  5. SIMVADOR [Concomitant]
     Route: 048
  6. UNSPECIFIED DRUG [Concomitant]
     Dosage: REPORTED AS LOPACE
     Route: 048
  7. MIXTARD HUMAN 70/30 [Concomitant]
     Route: 048

REACTIONS (1)
  - HERNIA [None]
